FAERS Safety Report 7254085-8 (Version None)
Quarter: 2011Q1

REPORT INFORMATION
  Report Type: 
  Country: None (occurrence: None)
  Receive Date: 20110129
  Receipt Date: 20100310
  Transmission Date: 20110831
  Serious: Yes (Hospitalization, Other)
  Sender: FDA-Public Use
  Company Number: US-ABBOTT-10P-163-0631720-00

PATIENT
  Sex: Female
  Weight: 55.842 kg

DRUGS (2)
  1. HUMIRA [Suspect]
     Route: 058
  2. HUMIRA [Suspect]
     Indication: CROHN'S DISEASE
     Route: 058

REACTIONS (2)
  - DIARRHOEA [None]
  - CROHN'S DISEASE [None]
